FAERS Safety Report 4682509-9 (Version None)
Quarter: 2005Q2

REPORT INFORMATION
  Report Type: 
  Country: None (occurrence: None)
  Receive Date: 20050531
  Receipt Date: 20050321
  Transmission Date: 20051028
  Serious: No
  Sender: FDA-Public Use
  Company Number: 2005BI006434

PATIENT
  Age: 61 Year
  Sex: Female
  Weight: 62.5964 kg

DRUGS (1)
  1. AMEVIVE [Suspect]
     Indication: PSORIASIS
     Dosage: 15 MG; QW; IM
     Route: 030
     Dates: start: 20040101, end: 20040101

REACTIONS (5)
  - ABDOMINAL PAIN [None]
  - DIARRHOEA [None]
  - HEADACHE [None]
  - LETHARGY [None]
  - MULTIPLE ALLERGIES [None]
